FAERS Safety Report 14816031 (Version 1)
Quarter: 2018Q2

REPORT INFORMATION
  Report Type: Spontaneous
  Country: RU (occurrence: RU)
  Receive Date: 20180426
  Receipt Date: 20180426
  Transmission Date: 20180711
  Serious: Yes (Death, Hospitalization, Other)
  Sender: FDA-Public Use
  Company Number: RU-SA-2018SA110756

PATIENT
  Age: 51 Year
  Sex: Male

DRUGS (3)
  1. OPDIVO [Suspect]
     Active Substance: NIVOLUMAB
     Dosage: DAILY DOSE: 240 MG / 600 MG
     Route: 042
  2. AVASTIN [Suspect]
     Active Substance: BEVACIZUMAB
     Dosage: DAILY DOSE: 240 MG / 600 MG
     Route: 042
  3. CLEXANE [Suspect]
     Active Substance: ENOXAPARIN SODIUM
     Dosage: DAILY DOSE: 240 MG / 600 MG
     Route: 065

REACTIONS (5)
  - Thrombocytopenia [Fatal]
  - Pleurisy [Fatal]
  - Haemoglobin decreased [Fatal]
  - Pulmonary embolism [Fatal]
  - Disseminated intravascular coagulation [Fatal]

NARRATIVE: CASE EVENT DATE: 20180119
